FAERS Safety Report 5974696-7 (Version None)
Quarter: 2008Q4

REPORT INFORMATION
  Report Type: 
  Country: None (occurrence: None)
  Receive Date: 20081201
  Receipt Date: 20081126
  Transmission Date: 20090506
  Serious: Yes (Death, Other)
  Sender: FDA-Public Use
  Company Number: JP-PFIZER INC-2008100281

PATIENT
  Age: 72 Year
  Sex: Female
  Weight: 38 kg

DRUGS (2)
  1. METHYLPREDNISOLONE 16MG TAB [Suspect]
     Indication: ANTI-NEUTROPHIL CYTOPLASMIC ANTIBODY POSITIVE VASCULITIS
     Dosage: DAILY DOSE:.5GRAM
     Dates: start: 20070101
  2. PREDNISOLONE [Suspect]
     Indication: ANTI-NEUTROPHIL CYTOPLASMIC ANTIBODY POSITIVE VASCULITIS
     Dosage: DAILY DOSE:20MG
     Route: 048
     Dates: start: 20070101

REACTIONS (3)
  - MULTI-ORGAN FAILURE [None]
  - PANCREATIC NEOPLASM [None]
  - PANCREATITIS ACUTE [None]
